FAERS Safety Report 24429556 (Version 3)
Quarter: 2024Q4

REPORT INFORMATION
  Report Type: Report from Study
  Country: CA (occurrence: CA)
  Receive Date: 20241012
  Receipt Date: 20241125
  Transmission Date: 20250114
  Serious: Yes (Hospitalization)
  Sender: BOEHRINGER INGELHEIM
  Company Number: CA-BoehringerIngelheim-2024-BI-046532

PATIENT
  Sex: Male

DRUGS (2)
  1. OFEV [Suspect]
     Active Substance: NINTEDANIB
     Indication: Product used for unknown indication
     Dates: start: 20240815, end: 20241004
  2. OFEV [Suspect]
     Active Substance: NINTEDANIB
     Dates: start: 20241109

REACTIONS (5)
  - Prostate cancer [Not Recovered/Not Resolved]
  - Oral bacterial infection [Not Recovered/Not Resolved]
  - Renal failure [Not Recovered/Not Resolved]
  - Productive cough [Not Recovered/Not Resolved]
  - Decreased appetite [Not Recovered/Not Resolved]
